FAERS Safety Report 7649531-1 (Version None)
Quarter: 2011Q3

REPORT INFORMATION
  Report Type: 
  Country: None (occurrence: None)
  Receive Date: 20110802
  Receipt Date: 20110719
  Transmission Date: 20111222
  Serious: Yes (Hospitalization, Other)
  Sender: FDA-Public Use
  Company Number: US-RANBAXY-2011US-46234

PATIENT

DRUGS (2)
  1. ISOTRETINOIN [Suspect]
     Indication: ACNE
     Dosage: UNK, UNK
     Route: 048
  2. CLARAVIS [Suspect]
     Indication: ACNE
     Dosage: UNK
     Route: 048

REACTIONS (7)
  - ABDOMINAL PAIN [None]
  - ULCER [None]
  - INFLAMMATORY BOWEL DISEASE [None]
  - CROHN'S DISEASE [None]
  - DIVERTICULITIS [None]
  - DIARRHOEA [None]
  - HAEMATOCHEZIA [None]
